FAERS Safety Report 4517857-6 (Version None)
Quarter: 2004Q4

REPORT INFORMATION
  Report Type: 
  Country: None (occurrence: None)
  Receive Date: 20041203
  Receipt Date: 20040210
  Transmission Date: 20050328
  Serious: No
  Sender: FDA-Public Use
  Company Number: US-BRISTOL-MYERS SQUIBB COMPANY-12502522

PATIENT
  Age: 21 Year
  Sex: Male
  Weight: 113 kg

DRUGS (2)
  1. PROLIXIN [Suspect]
     Indication: HALLUCINATION
     Route: 048
     Dates: start: 20040203
  2. SEROQUEL [Concomitant]

REACTIONS (1)
  - DRUG INEFFECTIVE [None]
